FAERS Safety Report 8139118-9 (Version None)
Quarter: 2012Q1

REPORT INFORMATION
  Report Type: 
  Country: None (occurrence: None)
  Receive Date: 20120215
  Receipt Date: 20120213
  Transmission Date: 20120608
  Serious: Yes (Hospitalization)
  Sender: FDA-Public Use
  Company Number: DE-MERCK-1202DEU00050

PATIENT
  Age: 66 Year
  Sex: Male

DRUGS (6)
  1. ZETIA [Suspect]
     Indication: HYPERCHOLESTEROLAEMIA
     Route: 048
     Dates: start: 20070601
  2. CYANOCOBALAMIN AND FOLIC ACID AND PYRIDOXINE HYDROCHLORIDE [Concomitant]
     Route: 048
     Dates: start: 20070601
  3. IRBESARTAN [Concomitant]
     Indication: HYPERTENSION
     Route: 048
     Dates: start: 20070601
  4. SIMVASTATIN [Concomitant]
     Indication: HYPERCHOLESTEROLAEMIA
     Route: 048
     Dates: start: 20070601
  5. ACYCLOVIR [Concomitant]
     Indication: ORAL HERPES
     Route: 061
     Dates: start: 20080122
  6. ASPIRIN [Concomitant]
     Indication: THROMBOSIS PROPHYLAXIS
     Route: 048
     Dates: start: 20070601

REACTIONS (3)
  - ORAL HERPES [None]
  - STEVENS-JOHNSON SYNDROME [None]
  - NASOPHARYNGITIS [None]
